FAERS Safety Report 12346635 (Version 1)
Quarter: 2016Q2

REPORT INFORMATION
  Report Type: Spontaneous
  Country: US (occurrence: None)
  Receive Date: 20160506
  Receipt Date: 20160506
  Transmission Date: 20160815
  Serious: Yes (Hospitalization)
  Sender: FDA-Public Use
  Company Number: None

PATIENT
  Age: 59 Year
  Sex: Female
  Weight: 52.16 kg

DRUGS (6)
  1. METRONIDAZOLE (FLAGYL) [Concomitant]
  2. STOOL SOFTNER [Concomitant]
     Active Substance: DOCUSATE SODIUM
  3. CALCIUM [Concomitant]
     Active Substance: CALCIUM
  4. AUGMENTIN [Suspect]
     Active Substance: AMOXICILLIN\CLAVULANATE POTASSIUM
     Indication: SINUSITIS
     Dosage: 20 PILLS FOR 10 DAYS TWICE DAILY BY MOUTH
     Route: 048
     Dates: start: 20160121, end: 20160126
  5. VITAMIN [Concomitant]
     Active Substance: VITAMINS
  6. FLORASTOR PROBIOTIC [Concomitant]

REACTIONS (9)
  - Haemorrhage [None]
  - Insomnia [None]
  - Feeding disorder [None]
  - Impaired work ability [None]
  - Clostridium difficile infection [None]
  - Asthenia [None]
  - Discomfort [None]
  - Rectal prolapse [None]
  - Weight decreased [None]

NARRATIVE: CASE EVENT DATE: 20160127
